FAERS Safety Report 6064351-X (Version None)
Quarter: 2009Q1

REPORT INFORMATION
  Report Type: 
  Country: None (occurrence: None)
  Receive Date: 20090203
  Receipt Date: 20090203
  Transmission Date: 20090719
  Serious: Yes (Hospitalization)
  Sender: FDA-Public Use
  Company Number: None

PATIENT
  Age: 53 Year
  Sex: Female
  Weight: 92.9874 kg

DRUGS (12)
  1. ANASTROZOLE [Suspect]
     Indication: BREAST CANCER
     Dosage: 1MG PO QD
     Route: 048
     Dates: start: 20081124, end: 20081224
  2. AZD0530 [Suspect]
     Indication: BREAST CANCER
     Dosage: 175 MG PO QD
     Route: 048
     Dates: start: 20081201, end: 20081224
  3. FENTANYL [Concomitant]
  4. MOBIC [Concomitant]
  5. MORPHINE SULPHATE ER [Concomitant]
  6. ZOMETA [Concomitant]
  7. SYNTHROID [Concomitant]
  8. LISINOPRIL [Concomitant]
  9. GLIPIZIDE [Concomitant]
  10. DULCOLAX [Concomitant]
  11. AMBIEN [Concomitant]
  12. CALCIUM GLUCONATE [Concomitant]

REACTIONS (8)
  - BLOOD CREATININE INCREASED [None]
  - CULTURE URINE POSITIVE [None]
  - ESCHERICHIA INFECTION [None]
  - HAEMOGLOBIN DECREASED [None]
  - LIMB DISCOMFORT [None]
  - OEDEMA PERIPHERAL [None]
  - PLATELET COUNT DECREASED [None]
  - PYREXIA [None]
